FAERS Safety Report 26191341 (Version 1)
Quarter: 2025Q4

REPORT INFORMATION
  Report Type: Report from Study
  Country: PK (occurrence: PK)
  Receive Date: 20251223
  Receipt Date: 20251223
  Transmission Date: 20260117
  Serious: Yes (Death)
  Sender: ROCHE
  Company Number: PK-ROCHE-10000462832

PATIENT
  Age: 45 Year
  Sex: Male

DRUGS (1)
  1. AVASTIN [Suspect]
     Active Substance: BEVACIZUMAB
     Indication: Colorectal cancer metastatic
     Route: 041
     Dates: start: 20250924

REACTIONS (2)
  - Acute kidney injury [Fatal]
  - Asphyxia [Fatal]

NARRATIVE: CASE EVENT DATE: 20251110
